FAERS Safety Report 6133399-9 (Version None)
Quarter: 2009Q1

REPORT INFORMATION
  Report Type: 
  Country: None (occurrence: None)
  Receive Date: 20090326
  Receipt Date: 20090319
  Transmission Date: 20090719
  Serious: Yes (Other)
  Sender: FDA-Public Use
  Company Number: PHHY2009JP10477

PATIENT
  Age: 66 Year
  Sex: Male

DRUGS (1)
  1. NEORAL [Suspect]
     Indication: NEPHROTIC SYNDROME
     Dosage: UNK
     Route: 048

REACTIONS (3)
  - BENIGN PROSTATIC HYPERPLASIA [None]
  - CONDITION AGGRAVATED [None]
  - URINARY RETENTION [None]
